FAERS Safety Report 11415887 (Version 1)
Quarter: 2015Q3

REPORT INFORMATION
  Report Type: Spontaneous
  Country: GB (occurrence: GB)
  Receive Date: 20150825
  Receipt Date: 20150825
  Transmission Date: 20151125
  Serious: Yes (Hospitalization)
  Sender: FDA-Public Use
  Company Number: GB-SUN PHARMACEUTICAL INDUSTRIES LTD-2015RR-101947

PATIENT

DRUGS (5)
  1. FLUCLOXACILLIN [Concomitant]
     Active Substance: FLUCLOXACILLIN
     Indication: RASH PRURITIC
     Route: 048
  2. METHYLCHLOROISOTHIAZOLINONE. [Suspect]
     Active Substance: METHYLCHLOROISOTHIAZOLINONE
     Indication: PRODUCT USED FOR UNKNOWN INDICATION
     Route: 065
  3. FLUCONAZOLE. [Suspect]
     Active Substance: FLUCONAZOLE
     Indication: RASH PRURITIC
     Route: 048
  4. METHYLISOTHIAZOLINONE [Suspect]
     Active Substance: METHYLISOTHIAZOLINONE
     Indication: PRODUCT USED FOR UNKNOWN INDICATION
     Route: 065
  5. CANESTEN [Suspect]
     Active Substance: CLOTRIMAZOLE
     Indication: RASH PRURITIC
     Route: 061

REACTIONS (1)
  - Dermatitis allergic [Unknown]
